FAERS Safety Report 5387648-5 (Version None)
Quarter: 2007Q3

REPORT INFORMATION
  Report Type: 
  Country: None (occurrence: None)
  Receive Date: 20070712
  Receipt Date: 20070703
  Transmission Date: 20080115
  Serious: Yes (Death, Hospitalization)
  Sender: FDA-Public Use
  Company Number: 2007JP002534

PATIENT
  Age: 65 Year
  Sex: Male

DRUGS (4)
  1. PROGRAF [Suspect]
     Indication: RHEUMATOID ARTHRITIS
     Dosage: 1 MG, UNKNOWN/D, ORAL
     Route: 048
     Dates: start: 20061201, end: 20070531
  2. VOLTAREN (DICLOFENAC) CAPSULE [Concomitant]
  3. CYTOTEC (MISOPROSTOL) PER ORAL NOS [Concomitant]
  4. AZULFIDINE PER ORAL NOS [Concomitant]

REACTIONS (2)
  - INTERSTITIAL LUNG DISEASE [None]
  - LYMPHOCYTE STIMULATION TEST POSITIVE [None]
